FAERS Safety Report 4513560-7 (Version None)
Quarter: 2004Q4

REPORT INFORMATION
  Report Type: 
  Country: None (occurrence: None)
  Receive Date: 20041130
  Receipt Date: 20040802
  Transmission Date: 20050328
  Serious: No
  Sender: FDA-Public Use
  Company Number: US-GLAXOSMITHKLINE-A0520526A

PATIENT
  Age: 46 Year
  Sex: Male

DRUGS (6)
  1. WELLBUTRIN XL [Suspect]
     Indication: DEPRESSION
     Dosage: 300MG PER DAY
     Route: 048
  2. OMEGA 3 [Concomitant]
  3. SELENIUM TRACE METAL ADDITIVE [Concomitant]
  4. NIACIN [Concomitant]
  5. VITAMIN B6 [Concomitant]
  6. VITAMIN B COMPLEX CAP [Concomitant]

REACTIONS (3)
  - AGITATION [None]
  - DEPRESSION [None]
  - INSOMNIA [None]
